FAERS Safety Report 6925876-5 (Version None)
Quarter: 2010Q3

REPORT INFORMATION
  Report Type: 
  Country: None (occurrence: None)
  Receive Date: 20100810
  Receipt Date: 20100729
  Transmission Date: 20110219
  Serious: Yes (Other)
  Sender: FDA-Public Use
  Company Number: 2005EU000692

PATIENT
  Age: 49 Year
  Sex: Male
  Weight: 78 kg

DRUGS (4)
  1. PROGRAF [Suspect]
     Indication: RENAL TRANSPLANT
     Dosage: 1 MG, BID, ORAL,2 MG BID, ORAL
     Route: 048
  2. FUMAGILLIN [Concomitant]
  3. CELLCEPT [Concomitant]
  4. PREDNISOLONE ACETATE [Concomitant]

REACTIONS (6)
  - DIARRHOEA [None]
  - DRUG INTERACTION [None]
  - DRUG LEVEL DECREASED [None]
  - MICROSPORIDIA INFECTION [None]
  - TRANSPLANT REJECTION [None]
  - WEIGHT DECREASED [None]
